FAERS Safety Report 8939102 (Version 1)
Quarter: 2012Q4

REPORT INFORMATION
  Report Type: 
  Country: US (occurrence: US)
  Receive Date: 20121203
  Receipt Date: 20121203
  Transmission Date: 20130627
  Serious: No
  Sender: FDA-Public Use
  Company Number: US-PFIZER INC-2012298449

PATIENT
  Age: 37 Year
  Sex: Male
  Weight: 93.42 kg

DRUGS (5)
  1. CHANTIX [Suspect]
     Indication: SMOKING CESSATION THERAPY
     Dosage: UNK
  2. LORTAB [Concomitant]
     Dosage: UNK, 4x/day
  3. VALIUM [Concomitant]
     Dosage: UNK, daily at bedtime
  4. GABAPENTIN [Concomitant]
     Dosage: UNK, daily at bed time
  5. MOBIC [Concomitant]
     Dosage: UNK, 2x/day

REACTIONS (1)
  - Accident [Unknown]
